FAERS Safety Report 7874139-2 (Version None)
Quarter: 2011Q4

REPORT INFORMATION
  Report Type: 
  Country: None (occurrence: None)
  Receive Date: 20111030
  Receipt Date: 20110516
  Transmission Date: 20120403
  Serious: No
  Sender: FDA-Public Use
  Company Number: US-AMGEN-USASP2011025236

PATIENT
  Age: 62 Year
  Sex: Female

DRUGS (4)
  1. ENBREL [Suspect]
     Indication: RHEUMATOID ARTHRITIS
     Dates: start: 20060101
  2. PREDNISONE [Concomitant]
  3. METHOTREXATE [Concomitant]
  4. EXCEDRIN                           /00110301/ [Concomitant]

REACTIONS (5)
  - MALAISE [None]
  - ABDOMINAL PAIN UPPER [None]
  - FAECES DISCOLOURED [None]
  - CONTUSION [None]
  - FLATULENCE [None]
